FAERS Safety Report 15092933 (Version 2)
Quarter: 2019Q2

REPORT INFORMATION
  Report Type: Spontaneous
  Country: US (occurrence: US)
  Receive Date: 20180629
  Receipt Date: 20190617
  Transmission Date: 20190711
  Serious: Yes (Other)
  Sender: FDA-Public Use
  Company Number: US-ASTRAZENECA-2018SE84752

PATIENT
  Age: 26475 Day
  Sex: Female

DRUGS (26)
  1. CRESTOR [Concomitant]
     Active Substance: ROSUVASTATIN CALCIUM
  2. HUMULIN NOS [Concomitant]
     Active Substance: INSULIN HUMAN
  3. SITAGLIPTIN [Concomitant]
     Active Substance: SITAGLIPTIN
  4. VYTORIN [Concomitant]
     Active Substance: EZETIMIBE\SIMVASTATIN
  5. EFFIENT [Concomitant]
     Active Substance: PRASUGREL HYDROCHLORIDE
  6. RISEDRONATE [Concomitant]
     Active Substance: RISEDRONATE SODIUM
  7. PREDNISONE. [Concomitant]
     Active Substance: PREDNISONE
  8. METHOCARBAMOL. [Concomitant]
     Active Substance: METHOCARBAMOL
  9. MELOXICAM. [Concomitant]
     Active Substance: MELOXICAM
  10. JANUVIA [Concomitant]
     Active Substance: SITAGLIPTIN PHOSPHATE
  11. NEXIUM [Suspect]
     Active Substance: ESOMEPRAZOLE MAGNESIUM
     Indication: GASTRIC PH DECREASED
     Route: 048
     Dates: start: 2006, end: 2013
  12. PHENYTOIN. [Concomitant]
     Active Substance: PHENYTOIN
  13. NEXIUM 24HR [Suspect]
     Active Substance: ESOMEPRAZOLE MAGNESIUM
     Indication: GASTRIC PH DECREASED
     Route: 048
     Dates: start: 2006, end: 2013
  14. ASPIRIN. [Concomitant]
     Active Substance: ASPIRIN
  15. METOLAZONE. [Concomitant]
     Active Substance: METOLAZONE
  16. NITROSTAT [Concomitant]
     Active Substance: NITROGLYCERIN
  17. ALLOPURINOL. [Concomitant]
     Active Substance: ALLOPURINOL
  18. AMLODIPINE BESYLATE. [Concomitant]
     Active Substance: AMLODIPINE BESYLATE
  19. PLAVIX [Concomitant]
     Active Substance: CLOPIDOGREL BISULFATE
  20. ACTONEL [Concomitant]
     Active Substance: RISEDRONATE SODIUM
  21. AMITIZA [Concomitant]
     Active Substance: LUBIPROSTONE
  22. AMLODIPINE [Concomitant]
     Active Substance: AMLODIPINE BESYLATE
  23. CEPHALEXIN. [Concomitant]
     Active Substance: CEPHALEXIN
  24. TEMAZEPAM. [Concomitant]
     Active Substance: TEMAZEPAM
  25. ADVAIR HFA [Concomitant]
     Active Substance: FLUTICASONE PROPIONATE\SALMETEROL XINAFOATE
  26. CILOSTAZOL. [Concomitant]
     Active Substance: CILOSTAZOL

REACTIONS (4)
  - Acute kidney injury [Unknown]
  - Chronic kidney disease [Unknown]
  - Renal failure [Unknown]
  - Renal impairment [Unknown]

NARRATIVE: CASE EVENT DATE: 20141030
